FAERS Safety Report 20744815 (Version 2)
Quarter: 2022Q2

REPORT INFORMATION
  Report Type: Spontaneous
  Country: CA (occurrence: CA)
  Receive Date: 20220425
  Receipt Date: 20220520
  Transmission Date: 20220721
  Serious: Yes (Other)
  Sender: FDA-Public Use
  Company Number: CA-PFIZER INC-2021138206

PATIENT
  Age: 68 Year
  Sex: Female
  Weight: 90.703 kg

DRUGS (19)
  1. REVATIO [Suspect]
     Active Substance: SILDENAFIL CITRATE
     Indication: Pulmonary arterial hypertension
     Dosage: 20 MG
     Route: 048
     Dates: start: 20210120
  2. ASPIRIN [Concomitant]
     Active Substance: ASPIRIN
     Dosage: 80 MG
  3. CLOPIDOGREL [Concomitant]
     Active Substance: CLOPIDOGREL BISULFATE
     Dosage: 12 MONTHS
  4. FUROSEMIDE [Concomitant]
     Active Substance: FUROSEMIDE
     Dosage: UNK
  5. GLICLAZIDE [Concomitant]
     Active Substance: GLICLAZIDE
     Dosage: UNK
  6. METOPROLOL [Concomitant]
     Active Substance: METOPROLOL
     Dosage: UNK
  7. NITROGLYCERIN [Concomitant]
     Active Substance: NITROGLYCERIN
     Dosage: UNK, AS NEEDED
  8. OPSUMIT [Concomitant]
     Active Substance: MACITENTAN
     Dosage: UNK
  9. OXAZEPAM [Concomitant]
     Active Substance: OXAZEPAM
     Dosage: UNK
  10. OXYGEN [Concomitant]
     Active Substance: OXYGEN
     Dosage: 2.5 LITERS 24/24
  11. PANTOPRAZOLE [Concomitant]
     Active Substance: PANTOPRAZOLE
     Dosage: UNK
  12. PMS TRANDOLAPRIL [Concomitant]
     Dosage: UNK
  13. CITALOPRAM [Concomitant]
     Active Substance: CITALOPRAM HYDROBROMIDE
     Dosage: UNK
  14. ROSUVASTATIN [Concomitant]
     Active Substance: ROSUVASTATIN
     Dosage: UNK
  15. ALBUTEROL [Concomitant]
     Active Substance: ALBUTEROL
     Dosage: UNK
  16. SPIRIVA [Concomitant]
     Active Substance: TIOTROPIUM BROMIDE MONOHYDRATE
     Dosage: UNK
  17. SYMBICORT [Concomitant]
     Active Substance: BUDESONIDE\FORMOTEROL FUMARATE DIHYDRATE
     Dosage: UNK
  18. TYLENOL [Concomitant]
     Active Substance: ACETAMINOPHEN
     Dosage: 500 MG
  19. TEVA SALBUTAMOL STERINEBS [Concomitant]
     Dosage: UNK

REACTIONS (7)
  - Oxygen saturation decreased [Recovering/Resolving]
  - Neck pain [Recovered/Resolved]
  - Blood pressure systolic decreased [Recovered/Resolved]
  - Eyelid oedema [Not Recovered/Not Resolved]
  - Seasonal allergy [Not Recovered/Not Resolved]
  - Dyspnoea [Not Recovered/Not Resolved]
  - Heart rate increased [Not Recovered/Not Resolved]

NARRATIVE: CASE EVENT DATE: 20210206
